FAERS Safety Report 5309480-0 (Version None)
Quarter: 2007Q2

REPORT INFORMATION
  Report Type: 
  Country: None (occurrence: None)
  Receive Date: 20070427
  Receipt Date: 20070423
  Transmission Date: 20071010
  Serious: Yes (Death, Other)
  Sender: FDA-Public Use
  Company Number: PHHO2006TW19426

PATIENT
  Age: 67 Year
  Sex: Male
  Weight: 68 kg

DRUGS (20)
  1. ZOLEDRONIC ACID [Suspect]
     Indication: METASTASES TO BONE
     Dosage: 4MG
     Route: 042
     Dates: start: 20061103, end: 20061103
  2. VITAMIN D [Concomitant]
  3. CALCIUM CHLORIDE [Concomitant]
  4. TAXOTERE [Concomitant]
  5. FUROSEMIDE [Concomitant]
  6. DEXAMETHASONE 0.5MG TAB [Concomitant]
  7. ACETAMINOPHEN [Concomitant]
  8. PROPRANOLOL [Concomitant]
  9. DEXTROMETHORPHAN [Concomitant]
  10. CALCIUM POLYSTYRENE SULFONATE [Concomitant]
  11. INDAPAMIDE [Concomitant]
  12. MOXIFLOXACIN HCL [Concomitant]
  13. ACTRAPID HUMAN [Concomitant]
  14. TRAMADOL HCL [Concomitant]
  15. CEFAZOLIN SODIUM [Concomitant]
  16. METOCLOPRAMIDE [Concomitant]
  17. SENNOSIDE B [Concomitant]
  18. HYOSCINE HBR HYT [Concomitant]
  19. MAGNESIUM OXIDE [Concomitant]
  20. OMEPRAZOLE [Concomitant]

REACTIONS (12)
  - ASTHENIA [None]
  - DRY MOUTH [None]
  - DYSPNOEA [None]
  - LOSS OF CONSCIOUSNESS [None]
  - METABOLIC ACIDOSIS [None]
  - OEDEMA PERIPHERAL [None]
  - ORTHOPNOEA [None]
  - PLEURAL EFFUSION [None]
  - PNEUMONIA [None]
  - RENAL IMPAIRMENT [None]
  - SCROTAL SWELLING [None]
  - SEPTIC SHOCK [None]
